FAERS Safety Report 4753250-9 (Version None)
Quarter: 2005Q3

REPORT INFORMATION
  Report Type: 
  Country: None (occurrence: None)
  Receive Date: 20050826
  Receipt Date: 20050822
  Transmission Date: 20060218
  Serious: Yes (Disabling, Other)
  Sender: FDA-Public Use
  Company Number: PHFR2005GB02840

PATIENT
  Sex: Female

DRUGS (4)
  1. ZOMETA [Suspect]
     Indication: MULTIPLE MYELOMA
     Route: 042
  2. ZOMORPH [Concomitant]
     Indication: PAIN
     Dosage: 10ML/DAY
     Route: 048
     Dates: start: 20030101
  3. FENTANYL [Concomitant]
     Indication: PAIN
     Dosage: 200UG/DAY
     Route: 062
  4. AMITRIPTYLINE HCL [Concomitant]
     Indication: PAIN
     Dosage: 75MG/DAY
     Route: 048

REACTIONS (2)
  - ASEPTIC NECROSIS BONE [None]
  - EATING DISORDER [None]
